FAERS Safety Report 5135071-0 (Version None)
Quarter: 2006Q4

REPORT INFORMATION
  Report Type: 
  Country: None (occurrence: None)
  Receive Date: 20060831
  Receipt Date: 20051017
  Transmission Date: 20070319
  Serious: Yes (Hospitalization)
  Sender: FDA-Public Use
  Company Number: 2005-US-00646

PATIENT
  Age: 24 Year
  Sex: Female

DRUGS (2)
  1. BACLOFEN TABLETS USP, 10MG (BACLOFEN) [Suspect]
     Dosage: 10 MG , TID , ORAL
     Route: 048
  2. LORAZEPAM [Concomitant]

REACTIONS (2)
  - DRUG WITHDRAWAL SYNDROME [None]
  - PYREXIA [None]
